FAERS Safety Report 8350606-2 (Version None)
Quarter: 2012Q2

REPORT INFORMATION
  Report Type: 
  Country: None (occurrence: None)
  Receive Date: 20120510
  Receipt Date: 20120427
  Transmission Date: 20120825
  Serious: Yes (Death, Hospitalization, Disabling, Other)
  Sender: FDA-Public Use
  Company Number: GB-MERCK-1107GBR00087

PATIENT
  Age: 83 Year
  Sex: Male
  Weight: 93 kg

DRUGS (11)
  1. GLICLAZIDE [Concomitant]
     Indication: TYPE 2 DIABETES MELLITUS
     Route: 065
     Dates: start: 19960101
  2. NIFEDIPINE [Concomitant]
     Indication: HYPERTENSION
     Route: 048
     Dates: start: 19990101
  3. ALLOPURINOL [Concomitant]
     Indication: GOUT
     Route: 048
     Dates: start: 19980101
  4. BUDESONIDE AND FORMOTEROL FUMARATE [Concomitant]
     Indication: CHRONIC OBSTRUCTIVE PULMONARY DISEASE
     Route: 055
     Dates: start: 20030101
  5. ATORVASTATIN [Concomitant]
     Indication: TYPE 2 DIABETES MELLITUS
     Route: 048
     Dates: start: 20020101
  6. PIOGLITAZONE HYDROCHLORIDE [Concomitant]
     Indication: TYPE 2 DIABETES MELLITUS
     Route: 048
     Dates: start: 20050101
  7. ASPIRIN [Concomitant]
     Indication: TYPE 2 DIABETES MELLITUS
     Route: 048
     Dates: start: 20040101, end: 20110518
  8. ACETAMINOPHEN AND CODEINE PHOSPHATE [Concomitant]
     Indication: PAIN
     Route: 065
     Dates: start: 20040101
  9. TAMSULOSIN HYDROCHLORIDE [Concomitant]
     Indication: PROSTATISM
     Route: 048
     Dates: start: 20010101
  10. JANUVIA [Suspect]
     Indication: TYPE 2 DIABETES MELLITUS
     Route: 048
     Dates: start: 20110101, end: 20110516
  11. RAMIPRIL [Concomitant]
     Indication: HYPERTENSION
     Route: 048
     Dates: start: 20000101, end: 20110506

REACTIONS (4)
  - SUDDEN DEATH [None]
  - PANCREATIC CARCINOMA [None]
  - JAUNDICE [None]
  - DRUG-INDUCED LIVER INJURY [None]
